FAERS Safety Report 9785183 (Version 5)
Quarter: 2014Q1

REPORT INFORMATION
  Report Type: Spontaneous
  Country: CN (occurrence: CN)
  Receive Date: 20131227
  Receipt Date: 20140129
  Transmission Date: 20141002
  Serious: Yes (Life-Threatening, Hospitalization)
  Sender: FDA-Public Use
  Company Number: CN-ROCHE-1325643

PATIENT
  Sex: 0

DRUGS (1)
  1. TAMIFLU [Suspect]
     Indication: INFLUENZA
     Route: 065

REACTIONS (7)
  - Sepsis [Recovered/Resolved]
  - Drug hypersensitivity [Recovered/Resolved]
  - Venous thrombosis limb [Recovered/Resolved]
  - Haemorrhage [Recovered/Resolved]
  - Lung infection [Recovered/Resolved]
  - Haematoma [Recovered/Resolved]
  - Phlebitis [Recovered/Resolved]
